FAERS Safety Report 5360184-8 (Version None)
Quarter: 2007Q2

REPORT INFORMATION
  Report Type: 
  Country: None (occurrence: None)
  Receive Date: 20070618
  Receipt Date: 20070608
  Transmission Date: 20071010
  Serious: Yes (Hospitalization)
  Sender: FDA-Public Use
  Company Number: PHBS2007JP08794

PATIENT
  Age: 52 Year
  Sex: Male

DRUGS (9)
  1. DIOVAN [Suspect]
     Indication: CARDIOMYOPATHY ALCOHOLIC
     Dosage: 80 MG/DAY
     Route: 048
     Dates: start: 20070426, end: 20070512
  2. TEGRETOL [Concomitant]
     Indication: EPILEPSY
     Dosage: 300 MG, BID
     Route: 048
     Dates: start: 20070401, end: 20070509
  3. ZESULAN [Concomitant]
     Dosage: 6 MG, UNK
     Route: 048
     Dates: start: 20070511
  4. TAKEPRON [Concomitant]
     Dosage: 15 MG, UNK
     Route: 048
     Dates: start: 20061201
  5. URSO 250 [Concomitant]
     Dosage: 300 MG, UNK
     Route: 048
     Dates: start: 20061201
  6. DIART [Concomitant]
     Dosage: 30 MG, UNK
     Route: 048
     Dates: start: 20060101
  7. NEOPHAGEN [Concomitant]
     Dosage: 75 MG, UNK
     Route: 048
     Dates: start: 20060101
  8. FLIVAS [Concomitant]
     Dosage: 50 MG, UNK
     Route: 048
     Dates: start: 20060101
  9. UBRETID [Concomitant]
     Dosage: 10 MG, UNK
     Route: 048
     Dates: start: 20060101

REACTIONS (2)
  - RASH GENERALISED [None]
  - TOXIC SKIN ERUPTION [None]
